FAERS Safety Report 14313409 (Version 1)
Quarter: 2017Q4

REPORT INFORMATION
  Report Type: Spontaneous
  Country: IT (occurrence: IT)
  Receive Date: 20171221
  Receipt Date: 20171221
  Transmission Date: 20180321
  Serious: Yes (Hospitalization)
  Sender: FDA-Public Use
  Company Number: IT-EMD SERONO-E2B_90002191

PATIENT
  Sex: Female

DRUGS (1)
  1. REBIF [Suspect]
     Active Substance: INTERFERON BETA-1A
     Indication: PRODUCT USED FOR UNKNOWN INDICATION
     Dosage: REBIF 22 MICROGRAMS/0.5 ML SOLUTION FOR INJECTION IN CARTRIDGE  ?CUMULATIVE DOSE TO FIRST REACTION:
     Route: 058
     Dates: start: 20170427

REACTIONS (2)
  - Strabismus [Unknown]
  - Vertigo [Unknown]

NARRATIVE: CASE EVENT DATE: 20170617
